FAERS Safety Report 13358386 (Version 1)
Quarter: 2017Q1

REPORT INFORMATION
  Report Type: Report from Study
  Country: MX (occurrence: MX)
  Receive Date: 20170322
  Receipt Date: 20170322
  Transmission Date: 20170429
  Serious: Yes (Other)
  Sender: FDA-Public Use
  Company Number: PHHY2017MX041626

PATIENT
  Age: 68 Year
  Sex: Female

DRUGS (1)
  1. IMATINIB [Suspect]
     Active Substance: IMATINIB
     Indication: CHRONIC MYELOID LEUKAEMIA
     Dosage: 100 MG, QD (EVERY 24 HOURS)
     Route: 065
     Dates: start: 20160330

REACTIONS (4)
  - Drug tolerance decreased [Unknown]
  - Renal cyst [Unknown]
  - Pancytopenia [Unknown]
  - Aplasia [Unknown]
